FAERS Safety Report 21139881 (Version 1)
Quarter: 2022Q3

REPORT INFORMATION
  Report Type: Other
  Country: US (occurrence: US)
  Receive Date: 20220728
  Receipt Date: 20220728
  Transmission Date: 20221026
  Serious: Yes (Other)
  Sender: FDA-Public Use
  Company Number: US-PTx-2022000045

PATIENT
  Age: 10 Year
  Sex: Female

DRUGS (3)
  1. LEUKINE [Suspect]
     Active Substance: SARGRAMOSTIM
     Indication: Brain neoplasm
     Dosage: 250 MCG/M2 SUBCUTANEOUSLY ON DAY 1 AND DAY 2
     Route: 058
  2. PELAREOREP [Suspect]
     Active Substance: PELAREOREP
     Indication: Brain neoplasm
     Dosage: 1;5?108(TCID)50/KG.DOSE LEVELS WERE REDEFINED, WITH REVISED DOSE LEVELS OF 1 ? 108 TCID50/KG/DOSE.
     Route: 042
  3. DEXAMETHASONE [Concomitant]
     Active Substance: DEXAMETHASONE
     Indication: Brain neoplasm

REACTIONS (2)
  - Seizure [Unknown]
  - Dysphagia [Unknown]
